FAERS Safety Report 15948192 (Version 1)
Quarter: 2019Q1

REPORT INFORMATION
  Report Type: Report from Study
  Country: None (occurrence: BR)
  Receive Date: 20190212
  Receipt Date: 20190212
  Transmission Date: 20190417
  Serious: Yes (Other)
  Sender: FDA-Public Use
  Company Number: BR-ABBVIE-19K-020-2655917-00

PATIENT
  Age: 71 Year
  Sex: Female

DRUGS (1)
  1. HUMIRA [Suspect]
     Active Substance: ADALIMUMAB
     Indication: PSORIATIC ARTHROPATHY
     Route: 058
     Dates: start: 20180716

REACTIONS (13)
  - Dysuria [Unknown]
  - Feeling hot [Unknown]
  - Musculoskeletal stiffness [Unknown]
  - Blood test abnormal [Unknown]
  - Anxiety [Unknown]
  - Asthenia [Unknown]
  - Malaise [Unknown]
  - Muscle spasms [Unknown]
  - Weight decreased [Unknown]
  - Adverse reaction [Unknown]
  - Stool analysis abnormal [Unknown]
  - Skin fissures [Not Recovered/Not Resolved]
  - Decreased appetite [Unknown]

NARRATIVE: CASE EVENT DATE: 201812
